FAERS Safety Report 4628495-9 (Version None)
Quarter: 2005Q2

REPORT INFORMATION
  Report Type: 
  Country: None (occurrence: None)
  Receive Date: 20050404
  Receipt Date: 20050323
  Transmission Date: 20051028
  Serious: Yes (Death, Hospitalization)
  Sender: FDA-Public Use
  Company Number: 26361

PATIENT
  Age: 63 Year
  Sex: Female

DRUGS (4)
  1. FLECAINIDE ACETATE [Suspect]
  2. HYPOLIPEMIANT [Concomitant]
  3. ATENOLOL [Concomitant]
  4. ACENOCOUMAROL [Concomitant]

REACTIONS (18)
  - ABDOMINAL PAIN UPPER [None]
  - ARRHYTHMIA [None]
  - BLOOD PRESSURE ABNORMAL [None]
  - CARDIO-RESPIRATORY ARREST [None]
  - CARDIOGENIC SHOCK [None]
  - CHEST PAIN [None]
  - DISCOMFORT [None]
  - DRUG INEFFECTIVE [None]
  - DYSPNOEA [None]
  - FATIGUE [None]
  - HAEMOGLOBIN DECREASED [None]
  - HYPOTENSION [None]
  - METABOLIC ACIDOSIS [None]
  - NAUSEA [None]
  - OXYGEN SATURATION DECREASED [None]
  - SINUS BRADYCARDIA [None]
  - VENTRICULAR TACHYCARDIA [None]
  - VOMITING [None]
